FAERS Safety Report 25605393 (Version 3)
Quarter: 2025Q3

REPORT INFORMATION
  Report Type: Spontaneous
  Country: US (occurrence: US)
  Receive Date: 20250725
  Receipt Date: 20250821
  Transmission Date: 20251021
  Serious: Yes (Other)
  Sender: BAYER HEALTHCARE PHARMACEUTICALS INC.
  Company Number: US-BAYER-2025A097878

PATIENT
  Age: 40 Year
  Sex: Female
  Weight: 128.8 kg

DRUGS (2)
  1. MIRENA [Suspect]
     Active Substance: LEVONORGESTREL
     Indication: Contraception
     Dosage: 20?G/DAY
     Route: 015
     Dates: start: 2015, end: 20250722
  2. MIRENA [Suspect]
     Active Substance: LEVONORGESTREL
     Indication: Heavy menstrual bleeding

REACTIONS (5)
  - Embedded device [Recovered/Resolved with Sequelae]
  - Device breakage [Recovered/Resolved with Sequelae]
  - Device use issue [Recovered/Resolved with Sequelae]
  - Complication of device removal [Recovered/Resolved with Sequelae]
  - Device expulsion [Recovered/Resolved]

NARRATIVE: CASE EVENT DATE: 20250101
